FAERS Safety Report 10581052 (Version 3)
Quarter: 2014Q4

REPORT INFORMATION
  Report Type: Report from Study
  Country: DE (occurrence: DE)
  Receive Date: 20141113
  Receipt Date: 20141230
  Transmission Date: 20150529
  Serious: Yes (Other)
  Sender: FDA-Public Use
  Company Number: DE-BAYER-2014-049586

PATIENT
  Age: 22 Year
  Sex: Male
  Weight: 72 kg

DRUGS (3)
  1. BETAFERON [Suspect]
     Active Substance: INTERFERON BETA-1B
     Indication: MULTIPLE SCLEROSIS
     Dosage: 250 ?G, QOD
     Route: 058
     Dates: start: 20131209, end: 20140329
  2. CITALOPRAM [Suspect]
     Active Substance: CITALOPRAM HYDROBROMIDE
     Indication: DYSTHYMIC DISORDER
     Dosage: 20 MG, QD
     Dates: start: 20140325, end: 20140414
  3. VENLAFAXINE [Concomitant]
     Active Substance: VENLAFAXINE HYDROCHLORIDE
     Indication: DEPRESSION
     Dosage: 50 MG, QD
     Route: 048
     Dates: start: 20141015, end: 20141104

REACTIONS (6)
  - Dysthymic disorder [Not Recovered/Not Resolved]
  - Major depression [Not Recovered/Not Resolved]
  - Drug eruption [Recovered/Resolved]
  - Rash erythematous [None]
  - Dermatitis allergic [Recovering/Resolving]
  - Optic neuritis [Recovering/Resolving]

NARRATIVE: CASE EVENT DATE: 20140210
